FAERS Safety Report 5928067-X (Version None)
Quarter: 2008Q4

REPORT INFORMATION
  Report Type: 
  Country: None (occurrence: None)
  Receive Date: 20081023
  Receipt Date: 20081017
  Transmission Date: 20090506
  Serious: Yes (Hospitalization)
  Sender: FDA-Public Use
  Company Number: A0753277A

PATIENT
  Age: 49 Year
  Sex: Male
  Weight: 102.3 kg

DRUGS (9)
  1. AVANDIA [Suspect]
     Dosage: 4MG PER DAY
     Route: 048
     Dates: start: 20011113, end: 20080118
  2. GLUCOTROL [Concomitant]
     Dates: start: 20011113, end: 20020201
  3. GLUCOTROL XL [Concomitant]
     Dates: start: 20020201
  4. GLARGINE [Concomitant]
     Dates: start: 20060501, end: 20080611
  5. ALTACE [Concomitant]
  6. DIOVAN [Concomitant]
  7. ASPIRIN [Concomitant]
  8. ALPHAGAN [Concomitant]
  9. LUMIGAN [Concomitant]

REACTIONS (1)
  - MYOCARDIAL INFARCTION [None]
